FAERS Safety Report 9014045 (Version 3)
Quarter: 2014Q3

REPORT INFORMATION
  Report Type: Spontaneous
  Country: US (occurrence: US)
  Receive Date: 20130115
  Receipt Date: 20140714
  Transmission Date: 20150326
  Serious: Yes (Hospitalization, Disabling, Other)
  Sender: FDA-Public Use
  Company Number: US-009507513-1301USA005125

PATIENT
  Sex: Female
  Weight: 88.44 kg

DRUGS (1)
  1. NUVARING [Suspect]
     Active Substance: ETHINYL ESTRADIOL\ETONOGESTREL
     Indication: CONTRACEPTION
     Dosage: UNK
     Route: 067
     Dates: start: 20120127, end: 20120229

REACTIONS (24)
  - Syncope [Unknown]
  - Back pain [Unknown]
  - Asthenia [Not Recovered/Not Resolved]
  - Musculoskeletal pain [Unknown]
  - Pleural effusion [Unknown]
  - Pharyngitis [Unknown]
  - Pollakiuria [Unknown]
  - Vomiting [Unknown]
  - Tachycardia [Unknown]
  - Pulmonary embolism [Recovering/Resolving]
  - Nausea [Unknown]
  - Amenorrhoea [Unknown]
  - Loss of consciousness [Unknown]
  - Pulmonary embolism [Unknown]
  - Coagulopathy [Unknown]
  - Deep vein thrombosis [Recovering/Resolving]
  - Tachypnoea [Unknown]
  - Urinary tract infection [Recovered/Resolved]
  - Chest pain [Unknown]
  - Vomiting [Unknown]
  - Abdominal pain [Unknown]
  - Body temperature increased [Unknown]
  - Panic attack [Unknown]
  - Generalised anxiety disorder [Unknown]

NARRATIVE: CASE EVENT DATE: 2012
